FAERS Safety Report 5314631-8 (Version None)
Quarter: 2007Q2

REPORT INFORMATION
  Report Type: 
  Country: None (occurrence: None)
  Receive Date: 20070427
  Receipt Date: 20070418
  Transmission Date: 20071010
  Serious: Yes (Life-Threatening, Hospitalization)
  Sender: FDA-Public Use
  Company Number: 100#08#2007-01325

PATIENT
  Age: 4 Year

DRUGS (1)
  1. AZITHROMYCIN [Suspect]
     Indication: EAR INFECTION
     Dosage: 250 MG ORAL
     Route: 048

REACTIONS (2)
  - GLUCOSE-6-PHOSPHATE DEHYDROGENASE DEFICIENCY [None]
  - HAEMOLYTIC ANAEMIA [None]
